FAERS Safety Report 15613106 (Version 4)
Quarter: 2019Q1

REPORT INFORMATION
  Report Type: Report from Study
  Country: CA (occurrence: CA)
  Receive Date: 20181113
  Receipt Date: 20190205
  Transmission Date: 20190417
  Serious: Yes (Other)
  Sender: FDA-Public Use
  Company Number: PHHY2018CA078949

PATIENT
  Age: 26 Year
  Sex: Female
  Weight: 59 kg

DRUGS (1)
  1. GILENYA [Suspect]
     Active Substance: FINGOLIMOD HYDROCHLORIDE
     Indication: RELAPSING-REMITTING MULTIPLE SCLEROSIS
     Dosage: 0.5 MG, QD
     Route: 048
     Dates: start: 20170913, end: 20180701

REACTIONS (8)
  - Oligohydramnios [Unknown]
  - Maternal exposure during pregnancy [Unknown]
  - Placental transfusion syndrome [Unknown]
  - Premature delivery [Recovered/Resolved]
  - Polyhydramnios [Unknown]
  - Multiple sclerosis relapse [Unknown]
  - Premature rupture of membranes [Unknown]
  - Twin pregnancy [Unknown]

NARRATIVE: CASE EVENT DATE: 2018
